FAERS Safety Report 20784819 (Version 1)
Quarter: 2022Q2

REPORT INFORMATION
  Report Type: Report from Study
  Country: GB (occurrence: GB)
  Receive Date: 20220504
  Receipt Date: 20220504
  Transmission Date: 20220721
  Serious: Yes (Other)
  Sender: FDA-Public Use
  Company Number: GB-SAMSUNG BIOEPIS-SB-2021-29892

PATIENT
  Age: 66 Year
  Sex: Female
  Weight: 47.6 kg

DRUGS (2)
  1. METHOTREXATE SODIUM [Suspect]
     Active Substance: METHOTREXATE SODIUM
     Indication: Product used for unknown indication
     Dosage: UNKNOWN
     Route: 065
  2. IMRALDI [Suspect]
     Active Substance: ADALIMUMAB
     Indication: Rheumatoid arthritis
     Dosage: EVERY 2 WEEKS
     Route: 058
     Dates: start: 20211030

REACTIONS (7)
  - Systemic lupus erythematosus [Unknown]
  - Rheumatoid arthritis [Unknown]
  - Stress [Unknown]
  - Poor quality sleep [Unknown]
  - Alopecia [Unknown]
  - Nail discolouration [Unknown]
  - Dyspepsia [Not Recovered/Not Resolved]
